FAERS Safety Report 5986656-0 (Version None)
Quarter: 2008Q4

REPORT INFORMATION
  Report Type: 
  Country: None (occurrence: None)
  Receive Date: 20081203
  Receipt Date: 20081118
  Transmission Date: 20090506
  Serious: Yes (Other)
  Sender: FDA-Public Use
  Company Number: 2008AL011740

PATIENT
  Age: 72 Year
  Sex: Male

DRUGS (10)
  1. RAMIPRIL [Suspect]
     Indication: HYPERTENSION
     Dosage: 5 MG;BID;PO
     Route: 048
     Dates: start: 20080304, end: 20081001
  2. ACYCLOVIR [Concomitant]
  3. ACETAMINOPHEN [Concomitant]
  4. ATORVASTATIN [Concomitant]
  5. NITROGLYCERIN [Concomitant]
  6. CLOPIDOGREL [Concomitant]
  7. AMEPRAZOLE [Concomitant]
  8. ACETYLSALICYLIC ACID [Concomitant]
  9. OMACOR [Concomitant]
  10. ATENOLOL [Concomitant]

REACTIONS (4)
  - AGITATION [None]
  - DROOLING [None]
  - DYSARTHRIA [None]
  - PARKINSONISM [None]
